FAERS Safety Report 8183227-5 (Version None)
Quarter: 2012Q1

REPORT INFORMATION
  Report Type: 
  Country: None (occurrence: None)
  Receive Date: 20120305
  Receipt Date: 20120224
  Transmission Date: 20120608
  Serious: Yes (Hospitalization, Other)
  Sender: FDA-Public Use
  Company Number: JP-ASTELLAS-2011JP007112

PATIENT
  Sex: Female
  Weight: 53.5 kg

DRUGS (5)
  1. COTRIM [Concomitant]
     Indication: EPSTEIN-BARR VIRUS INFECTION
     Dosage: 1 DF, UID/QD
     Route: 048
     Dates: start: 20090915, end: 20101216
  2. FOSCAVIR [Suspect]
     Indication: CYTOMEGALOVIRUS ENTEROCOLITIS
     Route: 065
  3. CANDESARTAN CILEXETIL [Concomitant]
     Indication: RENAL IMPAIRMENT
     Dosage: 4 MG, UNKNOWN/D
     Route: 048
  4. PROGRAF [Suspect]
     Indication: IMMUNOSUPPRESSANT DRUG THERAPY
     Route: 048
  5. CANDESARTAN CILEXETIL [Suspect]
     Indication: RENAL DISORDER
     Dosage: 4 MG, UID/QD
     Route: 048
     Dates: start: 20100104, end: 20101216

REACTIONS (3)
  - RENAL IMPAIRMENT [None]
  - POLYHYDRAMNIOS [None]
  - MATERNAL EXPOSURE DURING PREGNANCY [None]
